FAERS Safety Report 20851434 (Version 1)
Quarter: 2022Q2

REPORT INFORMATION
  Report Type: Report from Study
  Country: US (occurrence: US)
  Receive Date: 20220519
  Receipt Date: 20220519
  Transmission Date: 20220720
  Serious: Yes (Death, Other)
  Sender: FDA-Public Use
  Company Number: US-ACADIA PHARMACEUTICALS INC.-ACA-2022-PIM-001696

PATIENT
  Age: 74 Year
  Sex: Female

DRUGS (3)
  1. NUPLAZID [Suspect]
     Active Substance: PIMAVANSERIN TARTRATE
     Indication: Parkinson^s disease
     Dosage: 44 MILLIGRAM, QD (34MG CAPSULE + 10 MG TABLET)
     Route: 048
     Dates: start: 20210204, end: 20220510
  2. NUPLAZID [Suspect]
     Active Substance: PIMAVANSERIN TARTRATE
     Indication: Parkinson^s disease
     Dosage: 44 MILLIGRAM, QD (34 MG CAPSULE + 10 MG TABLET)
     Route: 048
     Dates: start: 20210204, end: 20220510
  3. GOCOVRI [Concomitant]
     Active Substance: AMANTADINE

REACTIONS (2)
  - Death [Fatal]
  - Overdose [Recovered/Resolved]

NARRATIVE: CASE EVENT DATE: 20210204
